FAERS Safety Report 5367343-9 (Version None)
Quarter: 2007Q2

REPORT INFORMATION
  Report Type: 
  Country: None (occurrence: None)
  Receive Date: 20070622
  Receipt Date: 20060601
  Transmission Date: 20071010
  Serious: No
  Sender: FDA-Public Use
  Company Number: US-ASTRAZENECA-2006UW05714

PATIENT
  Age: 19 Month
  Sex: Male
  Weight: 12.3 kg

DRUGS (5)
  1. PULMICORT RESPULES [Suspect]
     Indication: ASTHMA
     Dosage: 0.5MG/2 ML
     Route: 055
     Dates: start: 20050910, end: 20060329
  2. AMOXICILLIN [Concomitant]
     Dates: start: 20060314
  3. CLAVULANATE POTASSIUM [Concomitant]
     Dates: start: 20060314
  4. ZMAX [Concomitant]
  5. SINGULAIR [Concomitant]
     Dates: start: 20060329

REACTIONS (4)
  - ABNORMAL BEHAVIOUR [None]
  - BRUXISM [None]
  - SCREAMING [None]
  - TREMOR [None]
